FAERS Safety Report 10270325 (Version 1)
Quarter: 2014Q2

REPORT INFORMATION
  Report Type: Spontaneous
  Country: MY (occurrence: None)
  Receive Date: 20140627
  Receipt Date: 20140627
  Transmission Date: 20141212
  Serious: Yes (Hospitalization, Other)
  Sender: FDA-Public Use
  Company Number: 2014/044

PATIENT
  Age: 35 Year
  Sex: Female

DRUGS (2)
  1. CEFUROXIME {NO PREF. NAME} 750, MG ? [Suspect]
     Indication: PELVIC INFLAMMATORY DISEASE
  2. METRONIDAZOLE (NO PREF. NAME) 500 MG [Suspect]
     Indication: PELVIC INFLAMMATORY DISEASE

REACTIONS (13)
  - Acute psychosis [None]
  - Pyrexia [None]
  - Vaginal haemorrhage [None]
  - Irritability [None]
  - Crying [None]
  - Anger [None]
  - Physical assault [None]
  - Abnormal behaviour [None]
  - Depressed mood [None]
  - Feeling guilty [None]
  - Decreased appetite [None]
  - Hallucination, auditory [None]
  - Delusion [None]
